FAERS Safety Report 9992579 (Version 1)
Quarter: 2014Q1

REPORT INFORMATION
  Report Type: Spontaneous
  Country: FR (occurrence: FR)
  Receive Date: 20140310
  Receipt Date: 20140310
  Transmission Date: 20141002
  Serious: Yes (Hospitalization)
  Sender: FDA-Public Use
  Company Number: FR-BRISTOL-MYERS SQUIBB COMPANY-20352647

PATIENT
  Age: 19 Year
  Sex: Female

DRUGS (1)
  1. COUMADINE [Suspect]
     Indication: PULMONARY EMBOLISM
     Route: 048
     Dates: start: 20140206, end: 20140210

REACTIONS (1)
  - Pancreatitis acute [Recovered/Resolved]
